FAERS Safety Report 7359368-9 (Version None)
Quarter: 2011Q1

REPORT INFORMATION
  Report Type: 
  Country: None (occurrence: None)
  Receive Date: 20110317
  Receipt Date: 20110308
  Transmission Date: 20110831
  Serious: Yes (Other)
  Sender: FDA-Public Use
  Company Number: US-ASTRAZENECA-2011SE12919

PATIENT
  Age: 30 Year
  Sex: Female

DRUGS (2)
  1. FUROSEMIDE [Concomitant]
     Route: 048
  2. LISINOPRIL [Suspect]
     Route: 048

REACTIONS (2)
  - HEPATITIS CHRONIC ACTIVE [None]
  - HEPATOTOXICITY [None]
